FAERS Safety Report 10167973 (Version 1)
Quarter: 2014Q2

REPORT INFORMATION
  Report Type: Report from Study
  Country: IE (occurrence: IE)
  Receive Date: 20140512
  Receipt Date: 20140512
  Transmission Date: 20141212
  Serious: Yes (Hospitalization)
  Sender: FDA-Public Use
  Company Number: IE-GLAXOSMITHKLINE-B0886803A

PATIENT
  Age: 41 Year
  Sex: Female
  Weight: 66.9 kg

DRUGS (9)
  1. LAPATINIB [Suspect]
     Indication: NEOPLASM MALIGNANT
     Route: 048
     Dates: start: 20130408, end: 20130614
  2. TRASTUZUMAB [Suspect]
     Indication: NEOPLASM MALIGNANT
     Route: 042
     Dates: start: 20130408, end: 20130614
  3. PACLITAXEL [Suspect]
     Indication: NEOPLASM MALIGNANT
     Route: 042
     Dates: start: 20130408, end: 20130614
  4. OXYNORM [Concomitant]
     Indication: ANALGESIC THERAPY
     Dosage: 5MG AS REQUIRED
     Route: 048
  5. OXYCONTIN [Concomitant]
     Indication: ANALGESIC THERAPY
     Route: 048
     Dates: start: 20130311
  6. DIFENE [Concomitant]
     Indication: ANALGESIC THERAPY
     Route: 048
     Dates: start: 20130311
  7. LOSEC [Concomitant]
     Route: 048
     Dates: start: 20130311
  8. MOVICOL [Concomitant]
     Indication: CONSTIPATION
     Route: 048
     Dates: start: 2009, end: 20130407
  9. IMODIUM [Concomitant]
     Indication: DIARRHOEA
     Dosage: 4MG AS REQUIRED
     Route: 048
     Dates: start: 20130408

REACTIONS (1)
  - Gastritis [Not Recovered/Not Resolved]
